FAERS Safety Report 4708090-3 (Version None)
Quarter: 2005Q3

REPORT INFORMATION
  Report Type: 
  Country: None (occurrence: None)
  Receive Date: 20050707
  Receipt Date: 20050602
  Transmission Date: 20060218
  Serious: Yes (Other)
  Sender: FDA-Public Use
  Company Number: US-JNJFOC-20050601839

PATIENT
  Age: 65 Year
  Sex: Male
  Weight: 149.69 kg

DRUGS (1)
  1. REGRANEX [Suspect]
     Indication: DRUG USE FOR UNKNOWN INDICATION
     Route: 061
     Dates: start: 20040101

REACTIONS (1)
  - IMPAIRED HEALING [None]
